FAERS Safety Report 23272637 (Version 5)
Quarter: 2023Q4

REPORT INFORMATION
  Report Type: Spontaneous
  Country: US (occurrence: US)
  Receive Date: 20231207
  Receipt Date: 20231228
  Transmission Date: 20240110
  Serious: No
  Sender: FDA-Public Use
  Company Number: US-BAYER-2023A173462

PATIENT
  Age: 53 Year
  Sex: Female

DRUGS (1)
  1. CLIMARA PRO [Suspect]
     Active Substance: ESTRADIOL\LEVONORGESTREL
     Indication: Menopausal symptoms
     Dosage: UNK
     Route: 062

REACTIONS (4)
  - Uterine spasm [Recovered/Resolved]
  - Application site pain [Not Recovered/Not Resolved]
  - Alopecia [Recovered/Resolved with Sequelae]
  - Wrong technique in device usage process [None]
